FAERS Safety Report 9085054 (Version 1)
Quarter: 2013Q1

REPORT INFORMATION
  Report Type: Report from Study
  Country: FR (occurrence: FR)
  Receive Date: 20130131
  Receipt Date: 20130131
  Transmission Date: 20140127
  Serious: Yes (Hospitalization)
  Sender: FDA-Public Use
  Company Number: FR-PFIZER INC-2013035867

PATIENT
  Age: 72 Year
  Sex: Female
  Weight: 55 kg

DRUGS (6)
  1. TORISEL [Suspect]
     Dosage: 175 MG, WEEKLY
     Dates: start: 20100610, end: 20100617
  2. TORISEL [Suspect]
     Dosage: 75 MG, WEEKLY
     Dates: start: 20100715
  3. MABTHERA [Concomitant]
     Indication: MANTLE CELL LYMPHOMA
     Dosage: 600 MG, UNK
     Route: 042
     Dates: start: 20100610, end: 20100610
  4. EUPHYLLINE [Concomitant]
     Indication: ASTHMA
     Dosage: 200
  5. BRICANYL [Concomitant]
     Indication: ASTHMA
     Dosage: UNK
  6. NEO-MERCAZOLE [Concomitant]
     Indication: HYPERTHYROIDISM
     Dosage: UNK

REACTIONS (1)
  - Pancytopenia [Recovered/Resolved]
